FAERS Safety Report 14603957 (Version 1)
Quarter: 2018Q1

REPORT INFORMATION
  Report Type: Spontaneous
  Country: GB (occurrence: GB)
  Receive Date: 20180306
  Receipt Date: 20180306
  Transmission Date: 20180509
  Serious: Yes (Other)
  Sender: FDA-Public Use
  Company Number: GB-CONCORDIA PHARMACEUTICALS INC.-E2B_00010429

PATIENT
  Age: 55 Year
  Sex: Male
  Weight: 76.2 kg

DRUGS (1)
  1. PREDNISOLONE. [Suspect]
     Active Substance: PREDNISOLONE
     Indication: EAR INFECTION
     Dosage: PER EAR.
     Route: 001
     Dates: start: 20171227, end: 20171229

REACTIONS (4)
  - Blister [Not Recovered/Not Resolved]
  - Documented hypersensitivity to administered product [Unknown]
  - Ear swelling [Unknown]
  - Pain [Not Recovered/Not Resolved]

NARRATIVE: CASE EVENT DATE: 20171228
